FAERS Safety Report 15969403 (Version 13)
Quarter: 2019Q2

REPORT INFORMATION
  Report Type: Report from Study
  Country: US (occurrence: US)
  Receive Date: 20190215
  Receipt Date: 20190417
  Transmission Date: 20190711
  Serious: Yes (Hospitalization, Other)
  Sender: FDA-Public Use
  Company Number: US-GILEAD-2019-0390750

PATIENT
  Age: 51 Year
  Sex: Female

DRUGS (6)
  1. AMBRISENTAN [Suspect]
     Active Substance: AMBRISENTAN
     Dosage: 10 MG, QD
     Route: 065
     Dates: start: 20170824
  2. DILTIAZEM. [Concomitant]
     Active Substance: DILTIAZEM
  3. VELETRI [Concomitant]
     Active Substance: EPOPROSTENOL
  4. SILDENAFIL. [Concomitant]
     Active Substance: SILDENAFIL
  5. SILDENAFIL CITRATE. [Concomitant]
     Active Substance: SILDENAFIL CITRATE
  6. AMBRISENTAN [Suspect]
     Active Substance: AMBRISENTAN
     Indication: PULMONARY HYPERTENSION
     Dosage: 5 MG, QD
     Route: 065
     Dates: start: 20170824

REACTIONS (28)
  - Hypotension [Unknown]
  - Dizziness [Unknown]
  - Periorbital pain [Not Recovered/Not Resolved]
  - Decreased appetite [Recovering/Resolving]
  - Defaecation urgency [Unknown]
  - Lacrimation increased [Not Recovered/Not Resolved]
  - Anal incontinence [Unknown]
  - Frequent bowel movements [Unknown]
  - Infusion site haemorrhage [Not Recovered/Not Resolved]
  - Oxygen saturation decreased [Not Recovered/Not Resolved]
  - Intentional dose omission [Recovered/Resolved]
  - Bone pain [Not Recovered/Not Resolved]
  - Eye pain [Unknown]
  - Myalgia [Unknown]
  - Diarrhoea [Not Recovered/Not Resolved]
  - Unevaluable event [Unknown]
  - Dyspnoea [Not Recovered/Not Resolved]
  - Pulmonary arterial hypertension [Unknown]
  - Pain in jaw [Not Recovered/Not Resolved]
  - Musculoskeletal pain [Recovering/Resolving]
  - Eye irritation [Unknown]
  - Oropharyngeal pain [Unknown]
  - Chest pain [Unknown]
  - Haemorrhoids [Not Recovered/Not Resolved]
  - Oxygen consumption increased [Not Recovered/Not Resolved]
  - Headache [Not Recovered/Not Resolved]
  - Flushing [Not Recovered/Not Resolved]
  - Nasopharyngitis [Not Recovered/Not Resolved]

NARRATIVE: CASE EVENT DATE: 20190319
